FAERS Safety Report 7732862-4 (Version None)
Quarter: 2011Q3

REPORT INFORMATION
  Report Type: 
  Country: None (occurrence: None)
  Receive Date: 20110907
  Receipt Date: 20110831
  Transmission Date: 20111222
  Serious: Yes (Hospitalization)
  Sender: FDA-Public Use
  Company Number: PHHY2011GB77622

PATIENT
  Age: 49 Year
  Sex: Male

DRUGS (6)
  1. ACETYLSALICYLIC ACID SRT [Concomitant]
     Dosage: UNK UKN, UNK
  2. BUDESONIDE [Concomitant]
     Indication: ASTHMA
     Dosage: UNK UKN, UNK
  3. ATORVASTATIN [Concomitant]
     Dosage: UNK UKN, UNK
  4. ALBUTEROL [Suspect]
     Indication: ASTHMA
     Dosage: UNK UKN, UNK
  5. DIGOXIN [Concomitant]
     Dosage: UNK UKN, UNK
  6. SALMETEROL [Concomitant]
     Indication: ASTHMA
     Dosage: UNK UKN, UNK

REACTIONS (6)
  - WHEEZING [None]
  - BRONCHOSPASM [None]
  - COUGH [None]
  - ASTHMA [None]
  - LACTIC ACIDOSIS [None]
  - DYSPNOEA [None]
